FAERS Safety Report 12609018 (Version 2)
Quarter: 2016Q3

REPORT INFORMATION
  Report Type: Spontaneous
  Country: US (occurrence: US)
  Receive Date: 20160731
  Receipt Date: 20160804
  Transmission Date: 20161109
  Serious: Yes (Hospitalization)
  Sender: FDA-Public Use
  Company Number: US-TEVA-678769USA

PATIENT
  Age: 21 Year
  Sex: Male

DRUGS (6)
  1. HYDROXYCARBAMIDE [Suspect]
     Active Substance: HYDROXYUREA
     Dosage: 3 GRAM DAILY;
     Route: 048
     Dates: start: 20140404, end: 20140405
  2. HYDROXYCARBAMIDE [Suspect]
     Active Substance: HYDROXYUREA
     Dosage: 3 GRAM DAILY;
     Route: 048
     Dates: start: 20140406
  3. ASP2215 (ASP2215) [Concomitant]
     Indication: ACUTE MYELOID LEUKAEMIA
  4. HYDROXYCARBAMIDE [Suspect]
     Active Substance: HYDROXYUREA
     Dosage: 3 GRAM DAILY;
     Route: 048
     Dates: start: 20140325, end: 20140326
  5. HYDROXYCARBAMIDE [Suspect]
     Active Substance: HYDROXYUREA
     Route: 048
     Dates: start: 20140330, end: 20140403
  6. HYDROXYCARBAMIDE [Suspect]
     Active Substance: HYDROXYUREA
     Indication: ACUTE MYELOID LEUKAEMIA
     Dosage: 6 GRAM DAILY;
     Route: 048
     Dates: start: 20140327, end: 20140729

REACTIONS (9)
  - Sepsis [Not Recovered/Not Resolved]
  - Acute kidney injury [Not Recovered/Not Resolved]
  - Transaminases increased [Unknown]
  - Pain of skin [Recovering/Resolving]
  - Acute kidney injury [Recovered/Resolved]
  - Mucosal inflammation [Unknown]
  - Stomatitis [Recovered/Resolved]
  - Pancytopenia [Unknown]
  - Septic shock [Unknown]

NARRATIVE: CASE EVENT DATE: 20140404
